FAERS Safety Report 12333091 (Version 2)
Quarter: 2016Q4

REPORT INFORMATION
  Report Type: Spontaneous
  Country: US (occurrence: US)
  Receive Date: 20160504
  Receipt Date: 20161013
  Transmission Date: 20170207
  Serious: No
  Sender: FDA-Public Use
  Company Number: US-ROCHE-1700625

PATIENT
  Age: 63 Year
  Sex: Male

DRUGS (17)
  1. ALLEGRA-D [Concomitant]
     Active Substance: FEXOFENADINE\PSEUDOEPHEDRINE
  2. CYANOCOBALAMIN. [Concomitant]
     Active Substance: CYANOCOBALAMIN
  3. NIACIN. [Concomitant]
     Active Substance: NIACIN
  4. IBUPROFEN. [Concomitant]
     Active Substance: IBUPROFEN
  5. OFEV [Concomitant]
     Active Substance: NINTEDANIB
  6. ESBRIET [Suspect]
     Active Substance: PIRFENIDONE
     Indication: IDIOPATHIC PULMONARY FIBROSIS
     Route: 048
     Dates: start: 20151230
  7. PURINETHOL [Concomitant]
     Active Substance: MERCAPTOPURINE
  8. NASONEX [Concomitant]
     Active Substance: MOMETASONE FUROATE
  9. ENTOCORT [Concomitant]
     Active Substance: BUDESONIDE
  10. DEXILANT [Concomitant]
     Active Substance: DEXLANSOPRAZOLE
  11. SYNTHROID [Concomitant]
     Active Substance: LEVOTHYROXINE SODIUM
  12. PREDNISONE. [Concomitant]
     Active Substance: PREDNISONE
  13. HUMIRA [Suspect]
     Active Substance: ADALIMUMAB
     Indication: ENTERITIS
     Route: 058
     Dates: start: 20150821
  14. VICODIN [Concomitant]
     Active Substance: ACETAMINOPHEN\HYDROCODONE BITARTRATE
  15. ADVAIR HFA [Concomitant]
     Active Substance: FLUTICASONE PROPIONATE\SALMETEROL XINAFOATE
  16. VITAMIN B12 [Concomitant]
     Active Substance: CYANOCOBALAMIN
  17. CIPRO [Concomitant]
     Active Substance: CIPROFLOXACIN HYDROCHLORIDE

REACTIONS (1)
  - Nausea [Not Recovered/Not Resolved]

NARRATIVE: CASE EVENT DATE: 20160102
